FAERS Safety Report 24266812 (Version 1)
Quarter: 2024Q3

REPORT INFORMATION
  Report Type: Report from Study
  Country: US (occurrence: US)
  Receive Date: 20240830
  Receipt Date: 20240830
  Transmission Date: 20241016
  Serious: Yes (Other)
  Sender: IMMUNOGEN
  Company Number: US-IMMUNOGEN, INC.-US-IMGN-24-00647

PATIENT
  Sex: Female
  Weight: 71 kg

DRUGS (1)
  1. ELAHERE [Suspect]
     Active Substance: MIRVETUXIMAB SORAVTANSINE-GYNX
     Indication: Ovarian cancer
     Dosage: 260 MILLIGRAM, 3W
     Route: 042
     Dates: start: 20240330

REACTIONS (2)
  - Neuropathy peripheral [Unknown]
  - Balance disorder [Unknown]

NARRATIVE: CASE EVENT DATE: 20240401
